FAERS Safety Report 4525541-8 (Version None)
Quarter: 2004Q4

REPORT INFORMATION
  Report Type: 
  Country: None (occurrence: None)
  Receive Date: 20041210
  Receipt Date: 20041124
  Transmission Date: 20050328
  Serious: Yes (Hospitalization)
  Sender: FDA-Public Use
  Company Number: WAES 0406USA02667

PATIENT
  Age: 78 Year
  Sex: Female

DRUGS (10)
  1. FOSAMAX [Suspect]
     Indication: OSTEOPOROSIS
     Dosage: 5 MG/DAILY PO
     Route: 048
     Dates: start: 20030904, end: 20040506
  2. BAYASPIRIN (ASPIRIN) [Suspect]
     Indication: ANTICOAGULANT THERAPY
     Dosage: 100 MG/DAILY PO
     Route: 048
     Dates: start: 20010406, end: 20040506
  3. DEPAS [Concomitant]
  4. EPADEL [Concomitant]
  5. LANDEL [Concomitant]
  6. MERISLON [Concomitant]
  7. MOBILAT [Concomitant]
  8. SELTOUCH [Concomitant]
  9. VOLTAREN [Concomitant]
  10. KALLIKREIN [Concomitant]

REACTIONS (6)
  - ANAEMIA [None]
  - DIZZINESS [None]
  - FATIGUE [None]
  - GASTRIC ULCER [None]
  - GASTRITIS EROSIVE [None]
  - OEDEMA PERIPHERAL [None]
